FAERS Safety Report 10082997 (Version 1)
Quarter: 2014Q2

REPORT INFORMATION
  Report Type: Spontaneous
  Country: DE (occurrence: DE)
  Receive Date: 20140417
  Receipt Date: 20140417
  Transmission Date: 20141212
  Serious: Yes (Hospitalization)
  Sender: FDA-Public Use
  Company Number: DE-BIOGENIDEC-2014BI035234

PATIENT
  Age: 50 Year
  Sex: Female

DRUGS (3)
  1. AVONEX [Suspect]
     Indication: RELAPSING-REMITTING MULTIPLE SCLEROSIS
     Route: 030
     Dates: start: 20080801
  2. CARBAMAZEPINE [Concomitant]
     Route: 048
  3. AMITRIPTYLIN [Concomitant]

REACTIONS (2)
  - Benign renal neoplasm [Recovered/Resolved]
  - Paraesthesia [Not Recovered/Not Resolved]
